FAERS Safety Report 5744752-7 (Version None)
Quarter: 2008Q2

REPORT INFORMATION
  Report Type: 
  Country: None (occurrence: None)
  Receive Date: 20080520
  Receipt Date: 20080508
  Transmission Date: 20081010
  Serious: Yes (Other)
  Sender: FDA-Public Use
  Company Number: GB-PFIZER INC-2008032944

PATIENT
  Sex: Female
  Weight: 50 kg

DRUGS (4)
  1. VFEND [Suspect]
     Indication: CEREBRAL ASPERGILLOSIS
     Route: 048
  2. TACROLIMUS [Concomitant]
     Route: 048
  3. PREDNISOLONE [Concomitant]
     Route: 048
     Dates: start: 20071201
  4. OMEPRAZOLE [Concomitant]
     Route: 048

REACTIONS (3)
  - BILIARY TRACT DISORDER [None]
  - LIVER FUNCTION TEST ABNORMAL [None]
  - TRANSPLANT REJECTION [None]
